FAERS Safety Report 15047899 (Version 1)
Quarter: 2018Q2

REPORT INFORMATION
  Report Type: Spontaneous
  Country: US (occurrence: US)
  Receive Date: 20180621
  Receipt Date: 20180621
  Transmission Date: 20180711
  Serious: No
  Sender: FDA-Public Use
  Company Number: US-CELGENEUS-USA-20180606338

PATIENT
  Sex: Female

DRUGS (5)
  1. OTEZLA [Suspect]
     Active Substance: APREMILAST
     Indication: RHEUMATOID ARTHRITIS
  2. CLINDAMYCIN. [Suspect]
     Active Substance: CLINDAMYCIN
     Indication: INFECTION
     Route: 065
  3. OTEZLA [Suspect]
     Active Substance: APREMILAST
     Indication: PSORIASIS
  4. KEFLEX [Suspect]
     Active Substance: CEPHALEXIN
     Indication: INFECTION
     Route: 065
     Dates: end: 2018
  5. OTEZLA [Suspect]
     Active Substance: APREMILAST
     Indication: PSORIATIC ARTHROPATHY
     Dosage: 60 MILLIGRAM
     Route: 048
     Dates: start: 2016, end: 20180604

REACTIONS (4)
  - Nausea [Unknown]
  - Gastric disorder [Unknown]
  - Diarrhoea [Unknown]
  - Infection [Unknown]

NARRATIVE: CASE EVENT DATE: 2016
